FAERS Safety Report 13457454 (Version 1)
Quarter: 2017Q2

REPORT INFORMATION
  Report Type: Spontaneous
  Country: US (occurrence: US)
  Receive Date: 20170419
  Receipt Date: 20170419
  Transmission Date: 20170830
  Serious: Yes (Hospitalization, Other)
  Sender: FDA-Public Use
  Company Number: US-BAXTER-2013BAX034663

PATIENT
  Age: 72 Year
  Sex: Female
  Weight: 60.84 kg

DRUGS (39)
  1. TYKERB [Suspect]
     Active Substance: LAPATINIB DITOSYLATE
     Indication: MALIGNANT NEOPLASM PROGRESSION
     Dosage: REGIMEN #1
     Route: 065
     Dates: start: 20090629, end: 20090908
  2. ADRIAMYCIN [Suspect]
     Active Substance: DOXORUBICIN HYDROCHLORIDE
     Indication: BREAST CANCER METASTATIC
  3. TAXOL [Suspect]
     Active Substance: PACLITAXEL
     Indication: INVASIVE DUCTAL BREAST CARCINOMA
     Route: 065
     Dates: start: 200708, end: 20081218
  4. MARINOL (ALLOPURINOL) [Concomitant]
     Active Substance: ALLOPURINOL
     Indication: DECREASED APPETITE
     Route: 065
  5. CYCLOPHOSPHAMIDE FOR INJECTION, USP [Suspect]
     Active Substance: CYCLOPHOSPHAMIDE
     Indication: INVASIVE DUCTAL BREAST CARCINOMA
     Dosage: 4 CYCLES
     Route: 065
  6. TAMOXIFEN [Suspect]
     Active Substance: TAMOXIFEN
     Indication: INVASIVE DUCTAL BREAST CARCINOMA
  7. AREDIA [Suspect]
     Active Substance: PAMIDRONATE DISODIUM
     Indication: METASTASES TO BONE
     Route: 065
     Dates: start: 20091019
  8. AREDIA [Suspect]
     Active Substance: PAMIDRONATE DISODIUM
     Route: 065
     Dates: start: 20111221
  9. ZEVALIN [Suspect]
     Active Substance: IBRITUMOMAB TIUXETAN
     Indication: PRODUCT USED FOR UNKNOWN INDICATION
     Route: 065
     Dates: start: 20120104
  10. NAVELBINE [Suspect]
     Active Substance: VINORELBINE TARTRATE
     Indication: MALIGNANT NEOPLASM PROGRESSION
     Dosage: REGIMEN# 1
     Route: 065
     Dates: start: 20090629, end: 20091019
  11. CARBOPLATIN. [Suspect]
     Active Substance: CARBOPLATIN
     Indication: INVASIVE DUCTAL BREAST CARCINOMA
     Route: 065
     Dates: start: 200708, end: 20081218
  12. EXEMESTANE. [Suspect]
     Active Substance: EXEMESTANE
     Route: 065
  13. AFINITOR [Suspect]
     Active Substance: EVEROLIMUS
     Dosage: DOSE DECREASED
     Route: 065
  14. HERCEPTIN [Suspect]
     Active Substance: TRASTUZUMAB
     Dosage: RESTARTED
     Route: 065
     Dates: start: 20111025
  15. ARIMIDEX [Suspect]
     Active Substance: ANASTROZOLE
     Indication: INVASIVE DUCTAL BREAST CARCINOMA
     Route: 065
     Dates: start: 2005
  16. ARIMIDEX [Suspect]
     Active Substance: ANASTROZOLE
     Indication: BREAST CANCER METASTATIC
     Route: 065
     Dates: start: 20081218, end: 20090629
  17. AVASTIN [Suspect]
     Active Substance: BEVACIZUMAB
     Indication: INVASIVE DUCTAL BREAST CARCINOMA
     Route: 065
     Dates: start: 200708, end: 20081218
  18. CISPLATIN. [Suspect]
     Active Substance: CISPLATIN
     Route: 065
     Dates: start: 20111206
  19. LAPATINIB [Suspect]
     Active Substance: LAPATINIB
     Indication: PRODUCT USED FOR UNKNOWN INDICATION
     Route: 065
  20. AFINITOR [Suspect]
     Active Substance: EVEROLIMUS
     Indication: PRODUCT USED FOR UNKNOWN INDICATION
     Route: 065
  21. PERCOCET [Concomitant]
     Active Substance: ACETAMINOPHEN\OXYCODONE HYDROCHLORIDE
     Indication: PRODUCT USED FOR UNKNOWN INDICATION
     Route: 065
  22. HERCEPTIN [Suspect]
     Active Substance: TRASTUZUMAB
     Indication: MALIGNANT NEOPLASM PROGRESSION
     Route: 065
     Dates: start: 20110127
  23. CARBOPLATIN. [Suspect]
     Active Substance: CARBOPLATIN
     Indication: BREAST CANCER METASTATIC
  24. AVASTIN [Suspect]
     Active Substance: BEVACIZUMAB
     Indication: BREAST CANCER METASTATIC
  25. EXEMESTANE. [Suspect]
     Active Substance: EXEMESTANE
     Indication: PRODUCT USED FOR UNKNOWN INDICATION
     Route: 065
     Dates: start: 20100406, end: 20110127
  26. GEMZAR [Suspect]
     Active Substance: GEMCITABINE HYDROCHLORIDE
     Route: 065
     Dates: start: 20111206
  27. CYCLOPHOSPHAMIDE FOR INJECTION, USP [Suspect]
     Active Substance: CYCLOPHOSPHAMIDE
     Indication: BREAST CANCER METASTATIC
  28. HERCEPTIN [Suspect]
     Active Substance: TRASTUZUMAB
     Indication: INVASIVE DUCTAL BREAST CARCINOMA
     Route: 065
     Dates: start: 200704
  29. CAPECITABINE. [Suspect]
     Active Substance: CAPECITABINE
     Indication: PRODUCT USED FOR UNKNOWN INDICATION
     Dosage: (1500 MG), DAYS 1-14, EVERY 21 DAYS
     Route: 065
  30. FASLODEX [Suspect]
     Active Substance: FULVESTRANT
     Indication: CARBOHYDRATE ANTIGEN 15-3 INCREASED
     Dosage: 3 DOSES
     Route: 030
  31. ZEVALIN [Suspect]
     Active Substance: IBRITUMOMAB TIUXETAN
     Route: 065
     Dates: start: 20120201
  32. ADRIAMYCIN [Suspect]
     Active Substance: DOXORUBICIN HYDROCHLORIDE
     Indication: INVASIVE DUCTAL BREAST CARCINOMA
     Dosage: 4 CYCLES
     Route: 065
  33. TAMOXIFEN [Suspect]
     Active Substance: TAMOXIFEN
     Indication: BREAST CANCER METASTATIC
     Route: 065
  34. HERCEPTIN [Suspect]
     Active Substance: TRASTUZUMAB
     Indication: BREAST CANCER METASTATIC
     Dosage: INCREASED DOSES
     Route: 065
     Dates: end: 20081218
  35. TAXOTERE [Suspect]
     Active Substance: DOCETAXEL
     Indication: METASTASIS
     Route: 065
     Dates: start: 200704
  36. GEMZAR [Suspect]
     Active Substance: GEMCITABINE HYDROCHLORIDE
     Indication: MALIGNANT NEOPLASM PROGRESSION
     Route: 065
     Dates: start: 20110127
  37. CISPLATIN. [Suspect]
     Active Substance: CISPLATIN
     Indication: MALIGNANT NEOPLASM PROGRESSION
     Route: 065
     Dates: start: 20110127
  38. HALAVEN [Suspect]
     Active Substance: ERIBULIN MESYLATE
     Indication: CARBOHYDRATE ANTIGEN 15-3 INCREASED
     Dosage: DAYS 1 AND 8
     Route: 065
  39. TAXOL [Suspect]
     Active Substance: PACLITAXEL
     Indication: BREAST CANCER METASTATIC

REACTIONS (17)
  - Mass [Unknown]
  - Feeling hot [Unknown]
  - Epistaxis [Unknown]
  - Metastases to bone [Not Recovered/Not Resolved]
  - Malignant neoplasm progression [Unknown]
  - Cellulitis [Unknown]
  - Anxiety [Unknown]
  - Abdominal hernia [Unknown]
  - Metastases to lung [Unknown]
  - Splenic lesion [Unknown]
  - Thrombocytopenia [Unknown]
  - Oedema peripheral [Unknown]
  - Metastases to liver [Unknown]
  - Cellulitis [Recovered/Resolved]
  - Metastases to adrenals [Unknown]
  - Lymphadenopathy mediastinal [Unknown]
  - Pain in extremity [Unknown]

NARRATIVE: CASE EVENT DATE: 200702
